FAERS Safety Report 15941084 (Version 1)
Quarter: 2019Q1

REPORT INFORMATION
  Report Type: Spontaneous
  Country: US (occurrence: US)
  Receive Date: 20190208
  Receipt Date: 20190208
  Transmission Date: 20190417
  Serious: No
  Sender: FDA-Public Use
  Company Number: US-009507513-1902USA002654

PATIENT
  Sex: Female

DRUGS (4)
  1. PEMETREXED DISODIUM [Concomitant]
     Active Substance: PEMETREXED DISODIUM
  2. CARBOPLATIN. [Concomitant]
     Active Substance: CARBOPLATIN
  3. COZAAR [Suspect]
     Active Substance: LOSARTAN POTASSIUM
  4. KEYTRUDA [Suspect]
     Active Substance: PEMBROLIZUMAB
     Indication: NON-SMALL CELL LUNG CANCER
     Dosage: UNK
     Dates: start: 201805

REACTIONS (1)
  - Nasopharyngitis [Recovered/Resolved]
